FAERS Safety Report 6678691-4 (Version None)
Quarter: 2010Q2

REPORT INFORMATION
  Report Type: 
  Country: None (occurrence: None)
  Receive Date: 20100412
  Receipt Date: 20100412
  Transmission Date: 20101027
  Serious: No
  Sender: FDA-Public Use
  Company Number: None

PATIENT
  Age: 52 Year
  Sex: Female
  Weight: 79 kg

DRUGS (11)
  1. WARFARIN SODIUM [Suspect]
     Indication: THROMBOSIS PROPHYLAXIS
     Dosage: 5 MG PO DAILY STARTED PRIOR TO ADMISSION
     Route: 048
  2. ROSUVASTATIN [Concomitant]
  3. MILRINONE [Concomitant]
  4. AMIODARONE [Concomitant]
  5. WARFARIN SODIUM [Concomitant]
  6. SPIRONOLACTONE [Concomitant]
  7. METOPROLOL TARTRATE [Concomitant]
  8. SERTRALINE HCL [Concomitant]
  9. M.V.I. [Concomitant]
  10. ASCORBIC ACID [Concomitant]
  11. LANSOPRAZOLE [Concomitant]

REACTIONS (3)
  - ARRHYTHMIA [None]
  - CARDIAC FAILURE [None]
  - INTERNATIONAL NORMALISED RATIO INCREASED [None]
